FAERS Safety Report 5574136-6 (Version None)
Quarter: 2007Q4

REPORT INFORMATION
  Report Type: 
  Country: None (occurrence: None)
  Receive Date: 20071221
  Receipt Date: 20071205
  Transmission Date: 20080405
  Serious: Yes (Death)
  Sender: FDA-Public Use
  Company Number: 2006JP001717

PATIENT
  Age: 66 Year
  Sex: Female
  Weight: 49 kg

DRUGS (9)
  1. TACROLIMUS [Suspect]
     Indication: RHEUMATOID ARTHRITIS
     Dosage: 1.5 MG/D, ORAL; 3 MG, ORAL
     Route: 048
     Dates: start: 20051027, end: 20051207
  2. TACROLIMUS [Suspect]
     Indication: RHEUMATOID ARTHRITIS
     Dosage: 1.5 MG/D, ORAL; 3 MG, ORAL
     Route: 048
     Dates: start: 20051208, end: 20070306
  3. PREDNISOLONE [Suspect]
     Indication: RHEUMATOID ARTHRITIS
     Dosage: 5 MG/D, ORAL; 2.5 MG, ORAL
     Route: 048
     Dates: end: 20060802
  4. PREDNISOLONE [Suspect]
     Indication: RHEUMATOID ARTHRITIS
     Dosage: 5 MG/D, ORAL; 2.5 MG, ORAL
     Route: 048
     Dates: start: 20060803
  5. METHOTREXATE [Suspect]
     Indication: RHEUMATOID ARTHRITIS
     Dosage: 5 MG, WEEKLY, ORAL
     Route: 048
     Dates: end: 20070306
  6. ENBREL [Suspect]
     Dosage: 50 MG, WEEKLY, INTRADERMAL
     Route: 023
     Dates: start: 20061130, end: 20070215
  7. HYPEN (ETODOLAC) PER ORAL NOS [Concomitant]
  8. VOLTAREN [Concomitant]
  9. ISCOTIN (ISONIAZID) PER ORAL NOS [Concomitant]

REACTIONS (3)
  - BETA-N-ACETYL-D-GLUCOSAMINIDASE INCREASED [None]
  - HEPATORENAL SYNDROME [None]
  - LYMPHOCYTE COUNT DECREASED [None]
